FAERS Safety Report 15145518 (Version 6)
Quarter: 2019Q4

REPORT INFORMATION
  Report Type: Spontaneous
  Country: CA (occurrence: CA)
  Receive Date: 20180713
  Receipt Date: 20191126
  Transmission Date: 20200122
  Serious: Yes (Hospitalization, Other)
  Sender: FDA-Public Use
  Company Number: CA-ACTELION-A-US2018-172180

PATIENT
  Sex: Female
  Weight: 63.49 kg

DRUGS (9)
  1. METAMUCIL [Concomitant]
     Active Substance: PLANTAGO SEED
  2. FUROSEMIDE. [Concomitant]
     Active Substance: FUROSEMIDE
  3. ADCIRCA [Concomitant]
     Active Substance: TADALAFIL
  4. SYNTHROID [Concomitant]
     Active Substance: LEVOTHYROXINE SODIUM
  5. BIOTIN [Concomitant]
     Active Substance: BIOTIN
  6. OPSUMIT [Suspect]
     Active Substance: MACITENTAN
     Indication: PULMONARY HYPERTENSION
     Dosage: 10 MG, UNK
     Route: 048
     Dates: start: 20150211
  7. DILTIAZEM. [Concomitant]
     Active Substance: DILTIAZEM
  8. CARIPUL [Suspect]
     Active Substance: EPOPROSTENOL
     Indication: PULMONARY HYPERTENSION
     Dosage: 30000 NG
     Route: 042
     Dates: start: 20150302
  9. ASA [Concomitant]
     Active Substance: ASPIRIN
     Dosage: 81 MG, UNK

REACTIONS (13)
  - Cough [Unknown]
  - Stress fracture [Recovering/Resolving]
  - Catheter placement [Unknown]
  - Weight decreased [Recovering/Resolving]
  - Internal haemorrhage [Unknown]
  - Sepsis [Recovering/Resolving]
  - Dysphagia [Unknown]
  - Breast mass [Unknown]
  - Lung cyst [Unknown]
  - Lymphadenopathy [Unknown]
  - Intervertebral disc compression [Recovering/Resolving]
  - Anaemia [Not Recovered/Not Resolved]
  - Blood iron decreased [Unknown]
